FAERS Safety Report 22588289 (Version 1)
Quarter: 2023Q2

REPORT INFORMATION
  Report Type: Spontaneous
  Country: GB (occurrence: GB)
  Receive Date: 20230612
  Receipt Date: 20230612
  Transmission Date: 20230721
  Serious: Yes (Other)
  Sender: FDA-Public Use
  Company Number: None

PATIENT
  Age: 5 Year
  Sex: Female
  Weight: 15 kg

DRUGS (4)
  1. IBUPROFEN [Suspect]
     Active Substance: IBUPROFEN
     Indication: Product used for unknown indication
     Dosage: 100 MILLIGRAM/5ML, ORAL SUSPENSION
     Route: 065
  2. Cetraben emollient cream [Concomitant]
     Indication: Product used for unknown indication
     Dosage: UNK, (USE AS DIRECTED)
     Route: 065
  3. CHLORPHENIRAMINE MALEATE [Concomitant]
     Active Substance: CHLORPHENIRAMINE MALEATE
     Indication: Product used for unknown indication
     Dosage: UNK, (QDS)
     Route: 065
  4. LACTULOSE [Concomitant]
     Active Substance: LACTULOSE
     Indication: Product used for unknown indication
     Dosage: 5 MILLILITER, QD (1 DAY)
     Route: 065
     Dates: start: 20230328, end: 20230407

REACTIONS (2)
  - Swelling face [Unknown]
  - Rash [Recovering/Resolving]
